FAERS Safety Report 12074701 (Version 3)
Quarter: 2016Q1

REPORT INFORMATION
  Report Type: Spontaneous
  Country: DE (occurrence: DE)
  Receive Date: 20160212
  Receipt Date: 20160330
  Transmission Date: 20160526
  Serious: Yes (Other)
  Sender: FDA-Public Use
  Company Number: DE-TEVA-632861GER

PATIENT
  Age: 78 Year
  Sex: Female
  Weight: 67 kg

DRUGS (5)
  1. LERCANIDIPIN ACTAVIS 10 MG [Interacting]
     Active Substance: LERCANIDIPINE
     Indication: ARRHYTHMIA
  2. MARCUMAR [Interacting]
     Active Substance: PHENPROCOUMON
     Indication: ATRIAL FIBRILLATION
     Dosage: .5 DOSAGE FORMS DAILY; 0-0-0.5; INTAKE ACCORDING TO PLAN
     Dates: start: 20150811
  3. BISOPROLOL ABZ 5 MG TABLETTEN [Interacting]
     Active Substance: BISOPROLOL
     Indication: ARRHYTHMIA
  4. BISOPROLOL ABZ 5 MG TABLETTEN [Suspect]
     Active Substance: BISOPROLOL
     Indication: HYPERTENSION
     Dosage: 10 MILLIGRAM DAILY; 1-0-1
     Route: 048
     Dates: start: 20150811
  5. LERCANIDIPIN ACTAVIS 10 MG [Interacting]
     Active Substance: LERCANIDIPINE
     Indication: HYPERTENSION
     Dosage: 5 MILLIGRAM DAILY; 0.5-0-0
     Route: 048
     Dates: start: 20150811

REACTIONS (10)
  - Abdominal pain upper [Unknown]
  - Arrhythmia [Not Recovered/Not Resolved]
  - Tachycardia [Not Recovered/Not Resolved]
  - Bradycardia [Not Recovered/Not Resolved]
  - Drug interaction [Not Recovered/Not Resolved]
  - Asthenia [Not Recovered/Not Resolved]
  - Hot flush [Not Recovered/Not Resolved]
  - Feeling of body temperature change [Not Recovered/Not Resolved]
  - Atrial fibrillation [Not Recovered/Not Resolved]
  - Heart rate increased [Unknown]

NARRATIVE: CASE EVENT DATE: 20151117
